FAERS Safety Report 9629784 (Version 2)
Quarter: 2013Q4

REPORT INFORMATION
  Report Type: Spontaneous
  Country: FR (occurrence: FR)
  Receive Date: 20131017
  Receipt Date: 20131210
  Transmission Date: 20140711
  Serious: Yes (Hospitalization, Other)
  Sender: FDA-Public Use
  Company Number: FR-PFIZER INC-2013296467

PATIENT
  Age: 79 Year
  Sex: Male

DRUGS (14)
  1. EUPANTOL [Suspect]
     Dosage: UNK
     Route: 048
     Dates: end: 20131002
  2. NEFOPAM [Suspect]
     Dosage: 20/2 MG/ML, UNK
     Dates: end: 20131001
  3. PIPERACILLIN/TAZOBACTAM [Suspect]
     Dosage: UNK
     Dates: start: 20130726, end: 2013
  4. IMOVANE [Concomitant]
     Dosage: UNK
  5. MOVICOL [Concomitant]
     Dosage: UNK
  6. LASILIX [Concomitant]
     Dosage: UNK
  7. KARDEGIC [Concomitant]
     Dosage: UNK
  8. SERESTA [Concomitant]
     Dosage: UNK
  9. SPECIAFOLDINE [Concomitant]
     Dosage: UNK
  10. SOTALOL [Concomitant]
     Dosage: UNK
  11. ORAMORPH [Concomitant]
     Dosage: UNK
  12. DOLIPRANE [Concomitant]
     Dosage: UNK
  13. TARDYFERON [Concomitant]
     Dosage: UNK
  14. LOVENOX [Concomitant]
     Dosage: UNK

REACTIONS (1)
  - Agranulocytosis [Recovering/Resolving]
